FAERS Safety Report 25524636 (Version 4)
Quarter: 2025Q4

REPORT INFORMATION
  Report Type: Spontaneous
  Country: JP (occurrence: JP)
  Receive Date: 20250707
  Receipt Date: 20251031
  Transmission Date: 20260117
  Serious: Yes (Other)
  Sender: UCB
  Company Number: JP-UCBJ-CD202508710UCBPHAPROD

PATIENT
  Age: 57 Year

DRUGS (1)
  1. BIMZELX [Suspect]
     Active Substance: BIMEKIZUMAB-BKZX
     Indication: Hidradenitis
     Dosage: 320 MILLIGRAM (2 INJECTIONS OF 160MG), EV 2 WEEKS(QOW)

REACTIONS (1)
  - Squamous cell carcinoma of skin [Recovered/Resolved]
